FAERS Safety Report 4455188-3 (Version None)
Quarter: 2004Q3

REPORT INFORMATION
  Report Type: 
  Country: None (occurrence: None)
  Receive Date: 20040917
  Receipt Date: 20040830
  Transmission Date: 20050211
  Serious: Yes (Hospitalization)
  Sender: FDA-Public Use
  Company Number: WAES 0409USA00260

PATIENT
  Age: 80 Year
  Sex: Female

DRUGS (4)
  1. COZAAR [Suspect]
     Indication: HYPERTENSION
     Dosage: 50 MG/DAILY
     Dates: start: 20000901, end: 20031128
  2. MEVALOTIN [Concomitant]
  3. NICERGOLINE [Concomitant]
  4. TICLODIPINE HYDROCHLORIDE [Concomitant]

REACTIONS (3)
  - ARRHYTHMIA [None]
  - CORONARY ARTERY INSUFFICIENCY [None]
  - SICK SINUS SYNDROME [None]
